FAERS Safety Report 20724065 (Version 1)
Quarter: 2022Q2

REPORT INFORMATION
  Report Type: Spontaneous
  Country: US (occurrence: US)
  Receive Date: 20220419
  Receipt Date: 20220419
  Transmission Date: 20220721
  Serious: Yes (Other)
  Sender: FDA-Public Use
  Company Number: US-BAYER-2022A050648

PATIENT
  Age: 68 Year
  Sex: Female

DRUGS (1)
  1. MIRALAX [Suspect]
     Active Substance: POLYETHYLENE GLYCOL 3350
     Indication: Gastrointestinal disorder
     Dosage: 17 GRAMS MIXED WITH MORE THAN 8 OZ OF WATER
     Route: 048
     Dates: start: 20220406, end: 20220406

REACTIONS (3)
  - Nausea [Recovered/Resolved]
  - Drug ineffective [Recovered/Resolved]
  - Illness [Recovered/Resolved]

NARRATIVE: CASE EVENT DATE: 20220406
